FAERS Safety Report 23341795 (Version 1)
Quarter: 2023Q4

REPORT INFORMATION
  Report Type: Spontaneous
  Country: US (occurrence: None)
  Receive Date: 20231226
  Receipt Date: 20231226
  Transmission Date: 20240109
  Serious: Yes (Hospitalization)
  Sender: FDA-Public Use
  Company Number: None

PATIENT
  Age: 70 Year
  Sex: Male

DRUGS (15)
  1. ERLEADA [Suspect]
     Active Substance: APALUTAMIDE
     Indication: Prostate cancer
     Dosage: FREQUENCY : DAILY;?
     Route: 048
     Dates: start: 202111
  2. LUPRON [Concomitant]
     Active Substance: LEUPROLIDE ACETATE
  3. VITAMIN D [Concomitant]
  4. HYDROMORPHONE [Concomitant]
     Active Substance: HYDROMORPHONE
  5. OXYCODONE AND ACETAMINOPHEN [Concomitant]
     Active Substance: ACETAMINOPHEN\OXYCODONE HYDROCHLORIDE
  6. TIZANIDINE [Concomitant]
  7. METHOCARBAMOL [Concomitant]
  8. ALBUTEROL [Concomitant]
  9. LORATADINE [Concomitant]
     Active Substance: LORATADINE
  10. DICLOFENAC [Concomitant]
  11. POTASSIUM [Concomitant]
  12. BUDESONIDE/FORMOTEROL [Concomitant]
  13. ATORVASTATIN [Concomitant]
  14. BUPROPION [Concomitant]
  15. PROLIA [Concomitant]

REACTIONS (2)
  - Lung neoplasm malignant [None]
  - Osteoporosis [None]

NARRATIVE: CASE EVENT DATE: 20231201
